FAERS Safety Report 4342383-7 (Version None)
Quarter: 2004Q2

REPORT INFORMATION
  Report Type: 
  Country: None (occurrence: None)
  Receive Date: 20040421
  Receipt Date: 20040406
  Transmission Date: 20050107
  Serious: Yes (Other)
  Sender: FDA-Public Use
  Company Number: PHBS2004BR04696

PATIENT
  Age: 57 Year
  Sex: Female

DRUGS (2)
  1. TRILEPTAL [Suspect]
     Indication: CONVULSION
     Route: 048
     Dates: start: 20031001
  2. PHENYTOIN [Concomitant]
     Indication: CONVULSION
     Dosage: 2 TABLETS DAILY

REACTIONS (8)
  - DEPRESSION [None]
  - DIZZINESS [None]
  - HEADACHE [None]
  - IRRITABILITY [None]
  - MALAISE [None]
  - PYREXIA [None]
  - VISION BLURRED [None]
  - VISUAL DISTURBANCE [None]
